FAERS Safety Report 4314227-0 (Version None)
Quarter: 2004Q1

REPORT INFORMATION
  Report Type: 
  Country: None (occurrence: None)
  Receive Date: 20040309
  Receipt Date: 20040309
  Transmission Date: 20041129
  Serious: Yes (Hospitalization)
  Sender: FDA-Public Use
  Company Number: None

PATIENT
  Age: 63 Year
  Sex: Male
  Weight: 113.3993 kg

DRUGS (8)
  1. CRESTOR [Suspect]
     Indication: HYPERLIPIDAEMIA
     Dosage: 10 MG QD ORAL
     Route: 048
     Dates: start: 20031121, end: 20040303
  2. LISINOPRIL [Suspect]
     Indication: HYPERTENSION
     Dosage: 5 MG QD ORAL
     Route: 048
     Dates: start: 20031121, end: 20040303
  3. FLOMAX [Concomitant]
  4. ASPIRIN [Concomitant]
  5. VIAGRA [Concomitant]
  6. AVODART [Concomitant]
  7. NEXIUM [Concomitant]
  8. METFORMIN HCL [Concomitant]

REACTIONS (1)
  - ABDOMINAL PAIN [None]
